FAERS Safety Report 24801622 (Version 2)
Quarter: 2025Q3

REPORT INFORMATION
  Report Type: Spontaneous
  Country: US (occurrence: US)
  Receive Date: 20250102
  Receipt Date: 20250915
  Transmission Date: 20251020
  Serious: No
  Sender: PFIZER
  Company Number: US-PFIZER INC-202400275724

PATIENT
  Age: 66 Year
  Sex: Female
  Weight: 68.04 kg

DRUGS (4)
  1. XELJANZ XR [Suspect]
     Active Substance: TOFACITINIB CITRATE
     Indication: Rheumatoid arthritis
     Dosage: 11 MG, 1X/DAY
     Dates: start: 20241115
  2. XELJANZ XR [Suspect]
     Active Substance: TOFACITINIB CITRATE
     Dosage: 11MG; TAKES 1 A DAY
     Route: 048
  3. HERBALS\TURMERIC [Concomitant]
     Active Substance: HERBALS\TURMERIC
     Indication: Inflammation
     Dosage: 500MG 1 TABLET EVERY DAY
     Route: 048
     Dates: start: 202508
  4. VITAMIN D3 [Concomitant]
     Active Substance: CHOLECALCIFEROL
     Indication: Bone disorder
     Dosage: EVERY DAY 500MCG
     Route: 048
     Dates: start: 20250717

REACTIONS (16)
  - Nephropathy [Recovered/Resolved]
  - Haemoptysis [Recovered/Resolved]
  - Productive cough [Not Recovered/Not Resolved]
  - Sleep disorder [Unknown]
  - Sinusitis [Unknown]
  - Weight increased [Unknown]
  - Illness [Unknown]
  - Head discomfort [Unknown]
  - Throat irritation [Unknown]
  - Glossitis [Unknown]
  - Immune system disorder [Unknown]
  - Sinus bradycardia [Unknown]
  - Sinus congestion [Unknown]
  - Blood alkaline phosphatase decreased [Unknown]
  - Blood urea increased [Unknown]
  - Dyspnoea exertional [Unknown]

NARRATIVE: CASE EVENT DATE: 20240101
